FAERS Safety Report 10522111 (Version 1)
Quarter: 2014Q4

REPORT INFORMATION
  Report Type: Spontaneous
  Country: US (occurrence: US)
  Receive Date: 20141016
  Receipt Date: 20141016
  Transmission Date: 20150528
  Serious: No
  Sender: FDA-Public Use
  Company Number: US-PFIZER INC-2014282961

PATIENT
  Sex: Female

DRUGS (1)
  1. ADVIL PM [Suspect]
     Active Substance: DIPHENHYDRAMINE CITRATE\IBUPROFEN
     Indication: INSOMNIA
     Dosage: TWO TABLETS, UNK

REACTIONS (5)
  - Drug ineffective [Unknown]
  - Dry mouth [Unknown]
  - Tremor [Unknown]
  - Feeling abnormal [Unknown]
  - Mouth breathing [Unknown]
